FAERS Safety Report 19705758 (Version 3)
Quarter: 2021Q3

REPORT INFORMATION
  Report Type: Spontaneous
  Country: DE (occurrence: DE)
  Receive Date: 20210817
  Receipt Date: 20210905
  Transmission Date: 20211014
  Serious: Yes (Other)
  Sender: FDA-Public Use
  Company Number: DE-AMGEN-DEUSP2021123019

PATIENT

DRUGS (2)
  1. APREMILAST [Suspect]
     Active Substance: APREMILAST
     Indication: PSORIASIS
     Dosage: 30 MILLIGRAM, BID
     Route: 065
  2. DEUCRAVACITINIB. [Concomitant]
     Active Substance: DEUCRAVACITINIB
     Indication: PSORIASIS
     Dosage: 6 MILLIGRAM, QD
     Route: 065

REACTIONS (7)
  - Nausea [Unknown]
  - Therapy partial responder [Unknown]
  - Upper respiratory tract infection [Unknown]
  - Adverse reaction [Unknown]
  - Nasopharyngitis [Unknown]
  - Diarrhoea [Unknown]
  - Headache [Unknown]
